FAERS Safety Report 23672913 (Version 1)
Quarter: 2024Q1

REPORT INFORMATION
  Report Type: Spontaneous
  Country: US (occurrence: US)
  Receive Date: 20240326
  Receipt Date: 20240326
  Transmission Date: 20240410
  Serious: Yes (Other)
  Sender: FDA-Public Use
  Company Number: US-GTI-000191

PATIENT
  Age: 64 Year
  Sex: Male

DRUGS (2)
  1. PREDNISONE [Suspect]
     Active Substance: PREDNISONE
     Indication: Immunosuppression
     Route: 065
  2. TACROLIMUS [Suspect]
     Active Substance: TACROLIMUS
     Indication: Immunosuppression
     Route: 065

REACTIONS (5)
  - Nocardiosis [Recovered/Resolved]
  - Bacteraemia [Recovered/Resolved]
  - Cerebral nocardiosis [Recovered/Resolved]
  - Pneumonia [Recovered/Resolved]
  - Pulmonary nocardiosis [Recovered/Resolved]
